FAERS Safety Report 7676694-4 (Version None)
Quarter: 2011Q3

REPORT INFORMATION
  Report Type: 
  Country: None (occurrence: None)
  Receive Date: 20110811
  Receipt Date: 20110805
  Transmission Date: 20111222
  Serious: Yes (Hospitalization)
  Sender: FDA-Public Use
  Company Number: MY-AMGEN-MYSCT2011029300

PATIENT
  Age: 77 Year
  Sex: Female
  Weight: 47.5 kg

DRUGS (12)
  1. GLYBURIDE [Concomitant]
     Indication: DIABETES MELLITUS
     Dosage: UNK
     Route: 048
     Dates: start: 19950615
  2. METFORMIN HCL [Concomitant]
     Indication: DIABETES MELLITUS
     Dosage: UNK
     Route: 048
     Dates: start: 19950615
  3. PANITUMUMAB [Suspect]
     Indication: COLORECTAL CANCER
     Dosage: 290 MG, UNK
     Dates: start: 20101119
  4. CALCIUM LACTATE [Concomitant]
     Indication: DIABETES MELLITUS
     Dosage: UNK
     Route: 048
     Dates: start: 19950615
  5. LORATADINE [Concomitant]
     Indication: NASOPHARYNGITIS
     Dosage: UNK
     Route: 048
     Dates: start: 20101217
  6. LOVASTATIN [Concomitant]
     Indication: HYPERLIPIDAEMIA
     Dosage: UNK
     Route: 048
     Dates: start: 19950615
  7. HYDROCORTISONE [Concomitant]
     Indication: PRURITUS
     Dosage: UNK
     Route: 061
     Dates: start: 20110114
  8. CHLORPHENIRAMINE MALEATE [Concomitant]
     Indication: PRURITUS
     Dosage: UNK
     Route: 048
     Dates: start: 20101217
  9. ENALAPRIL MALEATE [Concomitant]
     Indication: HYPERTENSION
     Dosage: UNK
     Route: 048
     Dates: start: 19950615
  10. PANITUMUMAB [Suspect]
     Dosage: ADVERSE EVENT
     Dates: start: 20101119, end: 20110603
  11. AQUEOUS BP [Concomitant]
     Indication: PRURITUS
     Dosage: UNK
     Route: 061
     Dates: start: 20101219
  12. HYDROCORTISONE [Concomitant]
     Indication: ERYTHEMA

REACTIONS (11)
  - DEHYDRATION [None]
  - DIZZINESS [None]
  - BLOOD ALKALINE PHOSPHATASE INCREASED [None]
  - VOMITING [None]
  - BLOOD POTASSIUM DECREASED [None]
  - HAEMOGLOBIN DECREASED [None]
  - WHITE BLOOD CELL COUNT INCREASED [None]
  - BLOOD MAGNESIUM DECREASED [None]
  - BLOOD CALCIUM DECREASED [None]
  - HAEMORRHAGE [None]
  - BLOOD SODIUM DECREASED [None]
